FAERS Safety Report 17274347 (Version 4)
Quarter: 2020Q1

REPORT INFORMATION
  Report Type: Report from Study
  Country: GB (occurrence: GB)
  Receive Date: 20200115
  Receipt Date: 20200206
  Transmission Date: 20200409
  Serious: Yes (Hospitalization, Other)
  Sender: FDA-Public Use
  Company Number: GB-EISAI MEDICAL RESEARCH-EC-2020-068335

PATIENT
  Age: 70 Year
  Sex: Female
  Weight: 50 kg

DRUGS (2)
  1. LENVATINIB [Suspect]
     Active Substance: LENVATINIB
     Indication: ADENOID CYSTIC CARCINOMA
     Route: 048
     Dates: start: 20191114, end: 20191209
  2. DENOSUMAB [Concomitant]
     Active Substance: DENOSUMAB

REACTIONS (7)
  - Hypokalaemia [Recovered/Resolved]
  - Tumour pain [Recovering/Resolving]
  - Lethargy [Recovered/Resolved]
  - Malignant neoplasm progression [Not Recovered/Not Resolved]
  - Asthenia [Recovered/Resolved]
  - Dehydration [Recovered/Resolved]
  - Constipation [Recovered/Resolved]

NARRATIVE: CASE EVENT DATE: 201911
